FAERS Safety Report 9547214 (Version 2)
Quarter: 2013Q4

REPORT INFORMATION
  Report Type: Spontaneous
  Country: SI (occurrence: SI)
  Receive Date: 20130924
  Receipt Date: 20131011
  Transmission Date: 20140711
  Serious: Yes (Hospitalization, Other)
  Sender: FDA-Public Use
  Company Number: SI-CELGENEUS-261-21880-13091776

PATIENT
  Age: 65 Year
  Sex: Male
  Weight: 103 kg

DRUGS (3)
  1. REVLIMID [Suspect]
     Indication: PLASMA CELL MYELOMA
     Dosage: 25MG/ 1XDAILY 3 WEEKS THEN 1 WEEK PAUSE
     Route: 048
     Dates: start: 20100617, end: 20130704
  2. MEDROL [Concomitant]
     Indication: PRODUCT USED FOR UNKNOWN INDICATION
     Route: 065
     Dates: start: 20100617
  3. ASPIRIN [Concomitant]
     Indication: PRODUCT USED FOR UNKNOWN INDICATION
     Route: 065
     Dates: start: 20100617

REACTIONS (1)
  - Acute myeloid leukaemia [Not Recovered/Not Resolved]
